FAERS Safety Report 25608116 (Version 1)
Quarter: 2025Q3

REPORT INFORMATION
  Report Type: Spontaneous
  Country: EU (occurrence: EU)
  Receive Date: 20250725
  Receipt Date: 20250725
  Transmission Date: 20251020
  Serious: Yes (Disabling, Other)
  Sender: NOVARTIS
  Company Number: EU-002147023-NVSC2025FR085127

PATIENT
  Sex: Female

DRUGS (1)
  1. BEOVU [Suspect]
     Active Substance: BROLUCIZUMAB-DBLL
     Indication: Age-related macular degeneration
     Route: 031
     Dates: start: 20250417, end: 20250417

REACTIONS (7)
  - Retinal occlusive vasculitis [Not Recovered/Not Resolved]
  - Vitritis [Unknown]
  - Papilloedema [Unknown]
  - Posterior capsule opacification [Unknown]
  - Iridocyclitis [Unknown]
  - Anterior chamber flare [Unknown]
  - Visual acuity reduced [Unknown]

NARRATIVE: CASE EVENT DATE: 20250427
